FAERS Safety Report 7467496-2 (Version None)
Quarter: 2011Q2

REPORT INFORMATION
  Report Type: 
  Country: None (occurrence: None)
  Receive Date: 20110428
  Receipt Date: 20110412
  Transmission Date: 20111010
  Serious: Yes (Hospitalization, Disabling, Other)
  Sender: FDA-Public Use
  Company Number: 2011MA004233

PATIENT
  Sex: Female

DRUGS (1)
  1. METOCLOPRAMIDE [Suspect]

REACTIONS (6)
  - EXTRAPYRAMIDAL DISORDER [None]
  - QUALITY OF LIFE DECREASED [None]
  - PAIN [None]
  - TARDIVE DYSKINESIA [None]
  - DEFORMITY [None]
  - NEUROPATHY PERIPHERAL [None]
